FAERS Safety Report 5258288-3 (Version None)
Quarter: 2007Q1

REPORT INFORMATION
  Report Type: 
  Country: None (occurrence: None)
  Receive Date: 20070308
  Receipt Date: 20070227
  Transmission Date: 20070707
  Serious: Yes (Life-Threatening, Hospitalization, Other)
  Sender: FDA-Public Use
  Company Number: HQWYE070202JAN07

PATIENT
  Sex: Female
  Weight: 51 kg

DRUGS (23)
  1. MYLOTARG [Suspect]
     Indication: ACUTE MYELOID LEUKAEMIA RECURRENT
     Route: 041
     Dates: start: 20060517, end: 20060517
  2. ISALON [Concomitant]
     Indication: REFLUX OESOPHAGITIS
     Route: 048
     Dates: start: 20060329, end: 20060528
  3. VFEND [Concomitant]
     Indication: LIVER ABSCESS
     Route: 048
     Dates: start: 20060207, end: 20060528
  4. VFEND [Concomitant]
     Route: 048
     Dates: start: 20060603
  5. PANTOSIN [Concomitant]
     Indication: CONSTIPATION
     Dosage: UNKNOWN DOSE
     Route: 048
     Dates: start: 20060516, end: 20060528
  6. PANTOSIN [Concomitant]
     Dosage: UNKNOWN DOSE
     Route: 048
     Dates: start: 20060608
  7. MAGNESIUM OXIDE [Concomitant]
     Indication: CONSTIPATION
     Dosage: UNKNOWN DOSE
     Route: 048
     Dates: start: 20060516, end: 20060528
  8. MAGNESIUM OXIDE [Concomitant]
     Dosage: UNKNOWN DOSE
     Route: 048
     Dates: start: 20060608
  9. NEOPHAGEN [Concomitant]
     Route: 042
     Dates: start: 20060520, end: 20060608
  10. GRAN [Concomitant]
     Indication: PROPHYLAXIS
     Route: 058
     Dates: start: 20060524, end: 20060530
  11. SOHVITA [Concomitant]
     Dosage: UNKNOWN DOSE
     Route: 041
     Dates: start: 20060526, end: 20060531
  12. SOHVITA [Concomitant]
     Dosage: UNKNOWN DOSE
     Route: 041
     Dates: start: 20060606, end: 20060615
  13. MEROPEN [Concomitant]
     Route: 041
     Dates: start: 20060525, end: 20060528
  14. AMIKACIN [Concomitant]
     Route: 041
     Dates: start: 20060525, end: 20060528
  15. BUSCOPAN [Concomitant]
     Route: 041
     Dates: start: 20060527, end: 20060528
  16. PENTAZOCINE LACTATE [Concomitant]
     Route: 041
     Dates: start: 20060527, end: 20060528
  17. OMEPRAL [Concomitant]
     Indication: REFLUX OESOPHAGITIS
     Route: 042
     Dates: start: 20060528, end: 20060602
  18. FENTANEST [Concomitant]
     Route: 041
     Dates: start: 20060528, end: 20060614
  19. MODACIN [Concomitant]
     Route: 041
     Dates: start: 20060528, end: 20060606
  20. TARGOCID [Concomitant]
     Route: 041
     Dates: start: 20060528, end: 20060606
  21. VFEND [Concomitant]
     Route: 041
     Dates: start: 20060528, end: 20060602
  22. PARIET [Concomitant]
     Indication: REFLUX OESOPHAGITIS
     Route: 048
     Dates: start: 20060418, end: 20060528
  23. PARIET [Concomitant]
     Route: 048
     Dates: start: 20060603

REACTIONS (3)
  - ENTERITIS [None]
  - FEBRILE NEUTROPENIA [None]
  - GASTROINTESTINAL HAEMORRHAGE [None]
